FAERS Safety Report 5096038-4 (Version None)
Quarter: 2006Q3

REPORT INFORMATION
  Report Type: 
  Country: None (occurrence: None)
  Receive Date: 20060905
  Receipt Date: 20060828
  Transmission Date: 20061208
  Serious: Yes (Hospitalization)
  Sender: FDA-Public Use
  Company Number: 2006CG01423

PATIENT
  Age: 68 Year
  Sex: Female
  Weight: 41 kg

DRUGS (2)
  1. FASLODEX [Suspect]
     Indication: BREAST CANCER
     Route: 030
     Dates: start: 20060610, end: 20060719
  2. TAXOTERE [Concomitant]
     Indication: BREAST CANCER
     Dates: end: 20050501

REACTIONS (3)
  - DIARRHOEA [None]
  - FATIGUE [None]
  - INTESTINAL OBSTRUCTION [None]
